FAERS Safety Report 19475666 (Version 3)
Quarter: 2021Q3

REPORT INFORMATION
  Report Type: Report from Study
  Country: NL (occurrence: NL)
  Receive Date: 20210630
  Receipt Date: 20210921
  Transmission Date: 20211014
  Serious: Yes (Hospitalization, Other)
  Sender: FDA-Public Use
  Company Number: NVSC2019NL024241

PATIENT
  Age: 49 Year
  Sex: Female
  Weight: 75 kg

DRUGS (3)
  1. GILENYA [Suspect]
     Active Substance: FINGOLIMOD HYDROCHLORIDE
     Indication: MULTIPLE SCLEROSIS
     Dosage: 0.5 MG, QD
     Route: 048
     Dates: start: 20190318
  2. PANTOPRAZOLE [Concomitant]
     Active Substance: PANTOPRAZOLE
     Indication: PRODUCT USED FOR UNKNOWN INDICATION
     Route: 065
  3. CLONAZEPAM. [Concomitant]
     Active Substance: CLONAZEPAM
     Indication: PRODUCT USED FOR UNKNOWN INDICATION
     Dosage: UNK
     Route: 065

REACTIONS (20)
  - Negativism [Unknown]
  - Photophobia [Unknown]
  - Hypertension [Unknown]
  - Inappropriate schedule of product administration [Unknown]
  - Migraine [Recovered/Resolved]
  - Multiple sclerosis relapse [Recovered/Resolved]
  - Headache [Unknown]
  - Ocular discomfort [Unknown]
  - Aura [Recovered/Resolved]
  - Photopsia [Recovered/Resolved]
  - Blindness unilateral [Unknown]
  - Eye pain [Unknown]
  - Visual impairment [Recovering/Resolving]
  - Illness [Unknown]
  - Nausea [Unknown]
  - Vision blurred [Unknown]
  - Migraine [Unknown]
  - Headache [Recovered/Resolved]
  - Optic neuritis [Recovered/Resolved with Sequelae]
  - Visual acuity reduced [Unknown]

NARRATIVE: CASE EVENT DATE: 20210328
